FAERS Safety Report 6746397-9 (Version None)
Quarter: 2010Q2

REPORT INFORMATION
  Report Type: 
  Country: None (occurrence: None)
  Receive Date: 20100528
  Receipt Date: 20091113
  Transmission Date: 20101027
  Serious: No
  Sender: FDA-Public Use
  Company Number: A0810613A

PATIENT
  Age: 52 Year
  Sex: Female
  Weight: 61.8 kg

DRUGS (2)
  1. FLOLAN [Suspect]
     Route: 065
  2. FENTANYL [Suspect]
     Dosage: 100MCG UNKNOWN
     Route: 062
     Dates: start: 20090728

REACTIONS (3)
  - DRUG INEFFECTIVE [None]
  - ERYTHEMA [None]
  - OSTEOPOROSIS [None]
